FAERS Safety Report 19561063 (Version 1)
Quarter: 2021Q3

REPORT INFORMATION
  Report Type: Spontaneous
  Country: US (occurrence: US)
  Receive Date: 20210716
  Receipt Date: 20210716
  Transmission Date: 20211014
  Serious: Yes (Hospitalization)
  Sender: FDA-Public Use
  Company Number: US-NOVOPROD-828087

PATIENT
  Sex: Male

DRUGS (1)
  1. NOVOLIN 70/30 [Suspect]
     Active Substance: INSULIN HUMAN
     Indication: PRODUCT USED FOR UNKNOWN INDICATION
     Dosage: UNK
     Route: 058
     Dates: start: 20210601

REACTIONS (4)
  - Staphylococcal infection [Recovering/Resolving]
  - Diabetes mellitus [Recovering/Resolving]
  - Thrombosis [Recovering/Resolving]
  - Diabetic ulcer [Recovering/Resolving]
